FAERS Safety Report 13167034 (Version 9)
Quarter: 2018Q1

REPORT INFORMATION
  Report Type: Spontaneous
  Country: US (occurrence: US)
  Receive Date: 20170131
  Receipt Date: 20180321
  Transmission Date: 20180508
  Serious: Yes (Congenital Anomaly, Other)
  Sender: FDA-Public Use
  Company Number: PHEH2017US003064

PATIENT
  Sex: Male

DRUGS (1)
  1. ZOFRAN [Suspect]
     Active Substance: ONDANSETRON HYDROCHLORIDE
     Indication: FOETAL EXPOSURE DURING PREGNANCY
     Dosage: MOTHER^S DOSE: 08 MG
     Route: 064

REACTIONS (47)
  - Congenital aortic valve incompetence [Unknown]
  - Upper respiratory tract infection [Recovering/Resolving]
  - Abdominal discomfort [Unknown]
  - Concussion [Unknown]
  - Wound [Unknown]
  - Chest discomfort [Unknown]
  - Abdominal pain [Unknown]
  - Cellulitis [Recovering/Resolving]
  - Respiratory distress [Unknown]
  - Stomatitis [Unknown]
  - Skin papilloma [Unknown]
  - Headache [Unknown]
  - Congenital umbilical hernia [Recovering/Resolving]
  - Hand fracture [Unknown]
  - Foetal exposure during pregnancy [Unknown]
  - Otitis media [Recovered/Resolved]
  - Dermatitis diaper [Unknown]
  - Localised infection [Recovering/Resolving]
  - Cough [Recovering/Resolving]
  - Constipation [Unknown]
  - Bicuspid aortic valve [Unknown]
  - Facial bones fracture [Unknown]
  - Tricuspid valve incompetence [Unknown]
  - Oropharyngeal pain [Unknown]
  - Contusion [Unknown]
  - Foot deformity [Unknown]
  - Asthma [Unknown]
  - Cyanosis [Unknown]
  - Migraine [Unknown]
  - Aortic valve stenosis [Unknown]
  - Nasal congestion [Unknown]
  - Viral infection [Unknown]
  - Bronchial hyperreactivity [Unknown]
  - Muscle strain [Unknown]
  - Synovitis [Unknown]
  - Conjunctivitis [Unknown]
  - Injury [Unknown]
  - Otitis externa [Unknown]
  - Fall [Unknown]
  - Musculoskeletal discomfort [Unknown]
  - Tenosynovitis [Unknown]
  - Molluscum contagiosum [Unknown]
  - Bronchiolitis [Recovering/Resolving]
  - Cardiac murmur [Unknown]
  - Gastroenteritis [Unknown]
  - Impetigo [Unknown]
  - Blister [Unknown]
